FAERS Safety Report 8822118 (Version 1)
Quarter: 2012Q4

REPORT INFORMATION
  Report Type: 
  Country: US (occurrence: US)
  Receive Date: 20121003
  Receipt Date: 20121003
  Transmission Date: 20130627
  Serious: Yes (Hospitalization, Other)
  Sender: FDA-Public Use
  Company Number: US-JNJFOC-20120812251

PATIENT
  Age: 84 Year
  Sex: Male
  Weight: 84.82 kg

DRUGS (11)
  1. XARELTO [Suspect]
     Indication: CEREBROVASCULAR ACCIDENT PROPHYLAXIS
     Route: 048
     Dates: start: 20120628, end: 20120714
  2. XARELTO [Suspect]
     Indication: ATRIAL FIBRILLATION
     Route: 048
     Dates: start: 20120628, end: 20120714
  3. ASPIRIN [Suspect]
     Indication: ANTIPLATELET THERAPY
  4. LANTUS [Concomitant]
  5. HUMALOG [Concomitant]
  6. ZETIA [Concomitant]
  7. PRAVASTATIN [Concomitant]
  8. OMEPRAZOLE [Concomitant]
  9. LEVOXYL [Concomitant]
  10. DIOVAN [Concomitant]
  11. NIASPAN [Concomitant]

REACTIONS (1)
  - Small intestinal haemorrhage [Recovering/Resolving]
